FAERS Safety Report 5725276-X (Version None)
Quarter: 2008Q2

REPORT INFORMATION
  Report Type: 
  Country: None (occurrence: None)
  Receive Date: 20080429
  Receipt Date: 20080416
  Transmission Date: 20081010
  Serious: Yes (Other)
  Sender: FDA-Public Use
  Company Number: GXKR2008GB03869

PATIENT
  Age: 53 Year
  Sex: Female

DRUGS (12)
  1. FLECAINIDE (NGX) (FLECAINIDE) UNKNOWN [Suspect]
     Indication: ATRIAL FIBRILLATION
     Dosage: SEE IMAGE
     Route: 048
  2. GLICLAZIDE (GLICLAZIDE) [Concomitant]
  3. DILTIAZEM [Concomitant]
  4. METOPROLOL TARTRATE [Concomitant]
  5. CLOPIDOGREL [Concomitant]
  6. RAMIPRIL [Concomitant]
  7. ATORVASTATIN CALCIUM [Concomitant]
  8. RIFAMPICIN [Concomitant]
  9. ISONIAZID [Concomitant]
  10. PYRAZINAMIDE [Concomitant]
  11. PYRIDOXINE (PYRIDOXINE) [Concomitant]
  12. ETHAMBUTOL HYDROCHLORIDE [Concomitant]

REACTIONS (14)
  - AGITATION [None]
  - ASCITES [None]
  - ATRIAL FIBRILLATION [None]
  - BLOOD GLUCOSE INCREASED [None]
  - CONDITION AGGRAVATED [None]
  - CONFUSIONAL STATE [None]
  - DELUSIONAL DISORDER, PERSECUTORY TYPE [None]
  - DRUG LEVEL ABOVE THERAPEUTIC [None]
  - HALLUCINATION, VISUAL [None]
  - METABOLIC ENCEPHALOPATHY [None]
  - MYOCLONUS [None]
  - PERITONEAL TUBERCULOSIS [None]
  - SOMNOLENCE [None]
  - WEIGHT DECREASED [None]
